FAERS Safety Report 9071485 (Version 1)
Quarter: 2013Q1

REPORT INFORMATION
  Report Type: Spontaneous
  Country: US (occurrence: US)
  Receive Date: 20130206
  Receipt Date: 20130206
  Transmission Date: 20140127
  Serious: No
  Sender: FDA-Public Use
  Company Number: US-ALLERGAN-1212074US

PATIENT
  Age: 25 Year
  Sex: Female

DRUGS (1)
  1. RESTASIS? [Suspect]
     Indication: DRY EYE
     Dosage: 2 GTT, BID
     Route: 047
     Dates: start: 20120808, end: 20120808

REACTIONS (3)
  - Eye pain [Recovered/Resolved]
  - Eye pruritus [Recovered/Resolved]
  - Vision blurred [Recovered/Resolved]
